FAERS Safety Report 15378481 (Version 1)
Quarter: 2018Q3

REPORT INFORMATION
  Report Type: Spontaneous
  Country: BR (occurrence: BR)
  Receive Date: 20180913
  Receipt Date: 20180913
  Transmission Date: 20181010
  Serious: Yes (Other)
  Sender: FDA-Public Use
  Company Number: BR-PFIZER INC-2014229219

PATIENT
  Age: 66 Year
  Sex: Male
  Weight: 95 kg

DRUGS (4)
  1. CAPTOPRIL. [Concomitant]
     Active Substance: CAPTOPRIL
     Indication: HYPERTENSION
     Dosage: 50 MG, 3X/DAY (TWO CAPSULES/TABLETS EVERY 8 HOURS)
     Dates: start: 1999
  2. TANDRILAX [Concomitant]
     Active Substance: ACETAMINOPHEN\CAFFEINE\CARISOPRODOL\DICLOFENAC SODIUM
     Indication: ARTHRALGIA
     Dosage: 1 DF ^ONCE A DAY FOR 7 DAYS AS NEEDED^
     Dates: start: 2012
  3. LORAX [Suspect]
     Active Substance: LORAZEPAM
     Indication: SLEEP DISORDER
     Dosage: 4 MG, 1X/DAY (2 TABLETS AT NIGHT)
     Route: 048
     Dates: start: 19991016
  4. AMLODIPINE BESYLATE. [Concomitant]
     Active Substance: AMLODIPINE BESYLATE
     Indication: HYPERTENSION
     Dosage: 10 MG, 1X/DAY
     Dates: start: 2003

REACTIONS (6)
  - Retinal haemorrhage [Unknown]
  - Blindness [Unknown]
  - Intraocular pressure increased [Unknown]
  - Retinal detachment [Unknown]
  - Retinal artery occlusion [Unknown]
  - Pupillary disorder [Unknown]

NARRATIVE: CASE EVENT DATE: 2002
